FAERS Safety Report 21919081 (Version 1)
Quarter: 2023Q1

REPORT INFORMATION
  Report Type: Spontaneous
  Country: US (occurrence: None)
  Receive Date: 20230126
  Receipt Date: 20230126
  Transmission Date: 20230417
  Serious: Yes (Hospitalization)
  Sender: FDA-Public Use
  Company Number: None

PATIENT
  Sex: Female

DRUGS (2)
  1. SILDENAFIL CITRATE [Suspect]
     Active Substance: SILDENAFIL CITRATE
     Indication: Pulmonary arterial hypertension
     Dosage: OTHER FREQUENCY : EVERY 8 HOURS;?
     Route: 048
     Dates: start: 202203
  2. DEVICE [Suspect]
     Active Substance: DEVICE

REACTIONS (2)
  - Device defective [None]
  - Product quality issue [None]
